FAERS Safety Report 21976246 (Version 13)
Quarter: 2024Q4

REPORT INFORMATION
  Report Type: Spontaneous
  Country: CA (occurrence: CA)
  Receive Date: 20230210
  Receipt Date: 20241023
  Transmission Date: 20250115
  Serious: Yes (Hospitalization, Other)
  Sender: CELLTRION
  Company Number: CA-CELLTRION INC.-2022CA014067

PATIENT

DRUGS (36)
  1. INFLECTRA [Suspect]
     Active Substance: INFLIXIMAB-DYYB
     Indication: Crohn^s disease
     Dosage: 5 MG/KG, WEEK 0, 2, 6 THEN EVERY 8 WEEKS
     Route: 042
     Dates: start: 20220708
  2. INFLECTRA [Suspect]
     Active Substance: INFLIXIMAB-DYYB
     Dosage: 5 MG/KG, WEEK 0, 2, 6 THEN EVERY 8 WEEKS
     Route: 042
     Dates: start: 20220720
  3. INFLECTRA [Suspect]
     Active Substance: INFLIXIMAB-DYYB
     Dosage: 5 MG/KG, WEEK 0, 2, 6 THEN EVERY 8 WEEKS
     Route: 042
     Dates: start: 20220818
  4. INFLECTRA [Suspect]
     Active Substance: INFLIXIMAB-DYYB
     Dosage: 5 MG/KG, WEEK 0, 2, 6 THEN EVERY 8 WEEKS
     Route: 042
     Dates: start: 20221013
  5. INFLECTRA [Suspect]
     Active Substance: INFLIXIMAB-DYYB
     Dosage: 5 MG/KG, EVERY 6 WEEKS
     Route: 042
     Dates: start: 20221130, end: 20221130
  6. INFLECTRA [Suspect]
     Active Substance: INFLIXIMAB-DYYB
     Dosage: 5 MG/KG, (450 MG), SUPPOSED TO RECEIVE 7.5 MG/KG (REINDUCTION) 0, 2, 6, THEN EVERY 6 WEEKS
     Route: 042
     Dates: start: 20221219, end: 20221219
  7. INFLECTRA [Suspect]
     Active Substance: INFLIXIMAB-DYYB
     Dosage: 7.5 MG, EVERY 6 WEEKS
     Route: 042
     Dates: start: 20230131
  8. INFLECTRA [Suspect]
     Active Substance: INFLIXIMAB-DYYB
     Dosage: 7.5 MG/KG (1DF), REINDUCTION 7.5 MG/KG ON WEEKS 0, 2, 6, THEN EVERY 6 WEEKS
     Route: 042
     Dates: start: 20230313, end: 20230313
  9. INFLECTRA [Suspect]
     Active Substance: INFLIXIMAB-DYYB
     Dosage: 10 MG/KG, EVERY 6 WEEKS
     Route: 042
     Dates: start: 20230424, end: 20230424
  10. INFLECTRA [Suspect]
     Active Substance: INFLIXIMAB-DYYB
     Dosage: 10 MG/KG, EVERY 4 WEEKS
     Route: 042
     Dates: start: 20230523
  11. INFLECTRA [Suspect]
     Active Substance: INFLIXIMAB-DYYB
     Dosage: 10 MG/KG, EVERY 4 WEEKS
     Route: 042
     Dates: start: 20240102
  12. INFLECTRA [Suspect]
     Active Substance: INFLIXIMAB-DYYB
     Dosage: 10 MG/KG (910 MG), EVERY 4 WEEKS
     Route: 042
     Dates: start: 20240129
  13. INFLECTRA [Suspect]
     Active Substance: INFLIXIMAB-DYYB
     Dosage: 10 MG/KG (910 MG), EVERY 6 WEEKS
     Route: 042
     Dates: start: 20240311, end: 20240422
  14. INFLECTRA [Suspect]
     Active Substance: INFLIXIMAB-DYYB
     Dosage: 10 MG/KG, EVERY 5 WEEKS
     Route: 042
     Dates: start: 20240603
  15. INFLECTRA [Suspect]
     Active Substance: INFLIXIMAB-DYYB
     Dosage: 10 MG/KG (870 MG), AFTER 5 WEEKS AND 1 DAY (PRESCRIBED EVERY 6 WEEKS)
     Route: 042
     Dates: start: 20240709, end: 202408
  16. INFLECTRA [Suspect]
     Active Substance: INFLIXIMAB-DYYB
     Dosage: 840 MG, 10 WEEKS (RE-INDUCTION) (10 MG/KG, EVERY 4 WEEKS, REINDUCTION WEEK 0,2,6 THEN Q MONTHS)
     Route: 042
     Dates: start: 20240916
  17. AMLODIPINE [Concomitant]
     Active Substance: AMLODIPINE BESYLATE
     Dosage: 5 MG, DOSAGE NOT AVAILABLE
     Route: 065
  18. ASPIRIN [Concomitant]
     Active Substance: ASPIRIN
     Dosage: 80 MG, DOSAGE NOT AVAILABLE
     Route: 065
  19. BISOPROLOL [Concomitant]
     Active Substance: BISOPROLOL\BISOPROLOL FUMARATE
     Dosage: 5 MG, DOSAGE NOT AVAILABLE
     Route: 065
  20. BRIMONIDINE [Concomitant]
     Active Substance: BRIMONIDINE TARTRATE
     Dosage: 1 DF, DOSAGE NOT AVAILABLE
     Route: 047
  21. BRINZOLAMIDE [Concomitant]
     Active Substance: BRINZOLAMIDE
     Dosage: 1 DF, DOSAGE NOT AVAILABLE
     Route: 047
  22. EMPAGLIFLOZIN [Concomitant]
     Active Substance: EMPAGLIFLOZIN
     Dosage: 25 MG, DOSAGE NOT AVAILABLE
     Route: 065
  23. FERROUS SULFATE [Concomitant]
     Active Substance: FERROUS SULFATE
     Dosage: 300 MG,DOSAGE NOT AVAILABLE
     Route: 065
  24. FUROSEMIDE [Concomitant]
     Active Substance: FUROSEMIDE
     Dosage: 40 MG, DOSAGE NOT AVAILABLE
     Route: 065
  25. LATANOPROST [Concomitant]
     Active Substance: LATANOPROST
     Dosage: 1 DF, DOSAGE NOT AVAILABLE
     Route: 047
  26. LEVOTHYROXINE [Concomitant]
     Active Substance: LEVOTHYROXINE
     Dosage: 150 MG, DOSAGE NOT AVAILABLE
     Route: 065
  27. NPH INSULIN [Concomitant]
     Active Substance: INSULIN BEEF
     Dosage: 20 IU, 1X/DAY, DEPENDING OF THE BLOOD SUGAR AND CORTISONE DOSE
     Route: 058
  28. PANTOPRAZOLE [Concomitant]
     Active Substance: PANTOPRAZOLE
     Dosage: 40 MG, DOSAGE NOT AVAILABLE
     Route: 065
  29. SODIUM POLYSTYRENE SULFONATE [Concomitant]
     Active Substance: SODIUM POLYSTYRENE SULFONATE
     Dosage: 1 DF, DOSAGE NOT AVAILABLE
     Route: 048
  30. PREDNISOLONE [Concomitant]
     Active Substance: PREDNISOLONE
     Dosage: 1 DF, DOSAGE NOT AVAILABLE
     Route: 047
  31. PREGABALIN [Concomitant]
     Active Substance: PREGABALIN
     Dosage: 50 MG, DOSAGE NOT AVAILABLE
     Route: 065
  32. ROSUVASTATIN [Concomitant]
     Active Substance: ROSUVASTATIN
     Dosage: 5 MG, DOSAGE NOT AVAILABLE
     Route: 065
  33. SITAGLIPTIN [Concomitant]
     Active Substance: SITAGLIPTIN
     Dosage: 50 MG, DOSAGE NOT AVAILABLE
     Route: 065
  34. TIMOLOL [Concomitant]
     Active Substance: TIMOLOL\TIMOLOL MALEATE
     Dosage: 1 DF, DOSAGE NOT AVAILABLE
     Route: 047
  35. VEDOLIZUMAB [Concomitant]
     Active Substance: VEDOLIZUMAB
     Dosage: 300 MG, DOSAGE NOT AVAILABLE
     Route: 065
  36. VITAMIN B12 [Concomitant]
     Active Substance: CYANOCOBALAMIN
     Dosage: 5 MG, DOSAGE NOT AVAILABLE
     Route: 065

REACTIONS (17)
  - Inguinal hernia [Not Recovered/Not Resolved]
  - Bacterial infection [Not Recovered/Not Resolved]
  - Cellulitis [Recovering/Resolving]
  - Thrombophlebitis [Recovered/Resolved]
  - Osteitis deformans [Not Recovered/Not Resolved]
  - Arthralgia [Not Recovered/Not Resolved]
  - Blood pressure increased [Unknown]
  - Drug level below therapeutic [Not Recovered/Not Resolved]
  - Malaise [Unknown]
  - Mandibular mass [Not Recovered/Not Resolved]
  - Condition aggravated [Recovered/Resolved]
  - Nodule [Not Recovered/Not Resolved]
  - Off label use [Unknown]
  - Off label use [Unknown]
  - Intentional product use issue [Unknown]
  - Incorrect dose administered [Unknown]
  - Inappropriate schedule of product administration [Unknown]

NARRATIVE: CASE EVENT DATE: 20220101
